FAERS Safety Report 5471930-7 (Version None)
Quarter: 2007Q3

REPORT INFORMATION
  Report Type: 
  Country: None (occurrence: None)
  Receive Date: 20070928
  Receipt Date: 20070918
  Transmission Date: 20080115
  Serious: Yes (Congenital Anomaly)
  Sender: FDA-Public Use
  Company Number: AU-PFIZER INC-2007072592

PATIENT
  Sex: Male
  Weight: 88 kg

DRUGS (2)
  1. SUTENT [Suspect]
     Indication: METASTATIC RENAL CELL CARCINOMA
     Route: 048
  2. SERETIDE [Concomitant]
     Indication: ASTHMA
     Route: 055

REACTIONS (9)
  - ACTIVITIES OF DAILY LIVING IMPAIRED [None]
  - AGEUSIA [None]
  - BACK PAIN [None]
  - DIARRHOEA [None]
  - FATIGUE [None]
  - NAUSEA [None]
  - THROMBOCYTOPENIA [None]
  - TREMOR [None]
  - YELLOW SKIN [None]
